FAERS Safety Report 8105103-6 (Version None)
Quarter: 2012Q1

REPORT INFORMATION
  Report Type: 
  Country: None (occurrence: None)
  Receive Date: 20120201
  Receipt Date: 20120123
  Transmission Date: 20120608
  Serious: Yes (Hospitalization)
  Sender: FDA-Public Use
  Company Number: BE-PFIZER INC-2009294002

PATIENT
  Age: 61 Year
  Sex: Male
  Weight: 85 kg

DRUGS (5)
  1. PREDNISONE [Suspect]
     Indication: PROSTATE CANCER
     Dosage: 5 MG, 2X/DAY
     Route: 048
     Dates: start: 20091005
  2. LITICAN [Concomitant]
     Indication: NAUSEA
     Dosage: UNK
     Dates: start: 20091019
  3. LEUPROLIDE ACETATE [Concomitant]
     Indication: PROSTATE CANCER
     Dosage: UNK
     Route: 058
     Dates: start: 20080501
  4. ZANTAC [Concomitant]
     Indication: DYSPEPSIA
     Dosage: UNK
     Dates: start: 20091019
  5. SUNITINIB MALATE [Suspect]
     Indication: PROSTATE CANCER
     Dosage: 37.5 MG, 1X/DAY
     Route: 048
     Dates: start: 20091005

REACTIONS (1)
  - INTESTINAL OBSTRUCTION [None]
